FAERS Safety Report 20905961 (Version 1)
Quarter: 2022Q2

REPORT INFORMATION
  Report Type: Spontaneous
  Country: US (occurrence: None)
  Receive Date: 20220601
  Receipt Date: 20220601
  Transmission Date: 20220721
  Serious: Yes (Other)
  Sender: FDA-Public Use
  Company Number: None

PATIENT
  Age: 41 Year
  Sex: Female
  Weight: 85.5 kg

DRUGS (13)
  1. LAMOTRIGINE [Suspect]
     Active Substance: LAMOTRIGINE
     Indication: Affective disorder
     Dosage: OTHER QUANTITY : 4 CAPSULE(S);?FREQUENCY : AT BEDTIME;?
     Route: 048
  2. VENLAFAXINE [Concomitant]
     Active Substance: VENLAFAXINE HYDROCHLORIDE
  3. HYDROXYZINE [Concomitant]
     Active Substance: HYDROXYZINE HYDROCHLORIDE
  4. NURTEC ODT [Concomitant]
     Active Substance: RIMEGEPANT SULFATE
  5. LYRICA [Concomitant]
     Active Substance: PREGABALIN
  6. EPIPEN [Concomitant]
     Active Substance: EPINEPHRINE
  7. MAGNESIUM [Concomitant]
     Active Substance: MAGNESIUM
  8. CALCIUM [Concomitant]
     Active Substance: CALCIUM
  9. COLLAGEN [Concomitant]
     Active Substance: COLLAGEN
  10. VITAMINS [Concomitant]
     Active Substance: VITAMINS
  11. HERBALS\TURMERIC [Concomitant]
     Active Substance: HERBALS\TURMERIC
  12. VITAMIN C [Concomitant]
     Active Substance: ASCORBIC ACID
  13. VITAMIN D [Concomitant]
     Active Substance: VITAMIN D NOS

REACTIONS (14)
  - Eye movement disorder [None]
  - Disturbance in attention [None]
  - Mental impairment [None]
  - Speech disorder [None]
  - Headache [None]
  - Constipation [None]
  - Back pain [None]
  - Rash [None]
  - Pruritus [None]
  - Blister [None]
  - Skin exfoliation [None]
  - Lip blister [None]
  - Lip exfoliation [None]
  - Pyrexia [None]

NARRATIVE: CASE EVENT DATE: 20220523
